FAERS Safety Report 9414459 (Version 1)
Quarter: 2013Q3

REPORT INFORMATION
  Report Type: Spontaneous
  Country: FR (occurrence: FR)
  Receive Date: 20130717
  Receipt Date: 20130717
  Transmission Date: 20140515
  Serious: Yes (Hospitalization)
  Sender: FDA-Public Use
  Company Number: 2013000160

PATIENT
  Age: 73 Year
  Sex: Male

DRUGS (14)
  1. ACEON [Suspect]
     Indication: CARDIAC FAILURE
     Route: 048
  2. KARDEGIC (ACETYLSALICYLATE LYSINE) [Suspect]
     Indication: PRODUCT USED FOR UNKNOWN INDICATION
     Route: 048
  3. HUMALOG (INSULIN LISPRO) [Suspect]
     Indication: DIABETES MELLITUS
     Route: 058
  4. TAHOR (ATORVASTATIN CALCIUM) [Suspect]
     Indication: PRODUCT USED FOR UNKNOWN INDICATION
     Route: 048
  5. KEPPRA (LEVETIRACETAM) [Suspect]
     Indication: METASTASES TO CENTRAL NERVOUS SYSTEM
     Route: 048
  6. INEXIUM [Suspect]
     Indication: GASTROOESOPHAGEAL REFLUX DISEASE
     Route: 048
  7. ADANCOR [Suspect]
     Indication: ANGINA PECTORIS
     Route: 048
  8. SECTRAL (ACEBUTOLOL HYDROCHLORIDE) [Suspect]
     Indication: ANGINA PECTORIS
  9. XATRAL [Suspect]
     Indication: PRODUCT USED FOR UNKNOWN INDICATION
     Route: 050
  10. CORTANCYL (PREDNISONE) [Suspect]
     Indication: PRODUCT USED FOR UNKNOWN INDICATION
     Route: 048
  11. DIFFU K [Suspect]
     Indication: HYPOKALAEMIA
     Route: 048
  12. PERINDOPRIL (PERINDOPRIL) [Suspect]
     Indication: CARDIAC FAILURE
     Route: 048
  13. LEVEMIR (INSULIN DETEMIR) [Suspect]
     Indication: DIABETES MELLITUS
     Route: 058
  14. TARCEVA (ERLOTINIB HYDROCHLORIDE) TABLET [Suspect]
     Indication: LUNG NEOPLASM MALIGNANT
     Route: 048
     Dates: start: 201302

REACTIONS (2)
  - Pain in extremity [None]
  - Haematoma [None]
